FAERS Safety Report 5643665-9 (Version None)
Quarter: 2008Q1

REPORT INFORMATION
  Report Type: 
  Country: None (occurrence: None)
  Receive Date: 20080228
  Receipt Date: 20080218
  Transmission Date: 20080703
  Serious: Yes (Hospitalization, Other)
  Sender: FDA-Public Use
  Company Number: CA-PFIZER INC-2008015218

PATIENT
  Sex: Male
  Weight: 76 kg

DRUGS (8)
  1. SUTENT [Suspect]
     Indication: METASTATIC RENAL CELL CARCINOMA
     Route: 048
  2. LOVENOX [Concomitant]
     Route: 048
  3. NORVASC [Concomitant]
     Route: 048
  4. VALSARTAN [Concomitant]
     Route: 048
  5. ATENOLOL [Concomitant]
     Route: 048
  6. PANTOPRAZOLE SODIUM [Concomitant]
     Route: 048
  7. SYNTHROID [Concomitant]
     Route: 048
  8. DILAUDID [Concomitant]
     Route: 048

REACTIONS (1)
  - PERICARDIAL EFFUSION [None]
